FAERS Safety Report 7682330-3 (Version None)
Quarter: 2011Q3

REPORT INFORMATION
  Report Type: 
  Country: None (occurrence: None)
  Receive Date: 20110815
  Receipt Date: 20110804
  Transmission Date: 20111222
  Serious: Yes (Other)
  Sender: FDA-Public Use
  Company Number: US-BAYER-201041669NA

PATIENT
  Age: 19 Year
  Sex: Female
  Weight: 54.422 kg

DRUGS (4)
  1. YAZ [Suspect]
     Indication: ORAL CONTRACEPTION
     Dosage: UNK UNK, UNK
     Route: 048
     Dates: start: 20080701, end: 20090601
  2. HYDROCODONE [Concomitant]
     Dosage: UNK UNK, PRN
     Route: 048
     Dates: start: 20081028
  3. AMOXICILLIN [Concomitant]
     Dosage: 500 MG, UNK
     Route: 048
     Dates: start: 20081012
  4. YASMIN [Suspect]
     Indication: ORAL CONTRACEPTION
     Dosage: UNK UNK, UNK
     Route: 048
     Dates: start: 20060501, end: 20080401

REACTIONS (3)
  - BILIARY DYSKINESIA [None]
  - DYSPEPSIA [None]
  - GALLBLADDER DISORDER [None]
